FAERS Safety Report 9021001 (Version 1)
Quarter: 2013Q1

REPORT INFORMATION
  Report Type: Spontaneous
  Country: US (occurrence: US)
  Receive Date: 20130119
  Receipt Date: 20130119
  Transmission Date: 20140127
  Serious: No
  Sender: FDA-Public Use
  Company Number: US-ALLERGAN-1203655US

PATIENT
  Age: 62 Year
  Sex: Female
  Weight: 52.15 kg

DRUGS (6)
  1. BOTOX COSMETIC [Suspect]
     Indication: SKIN WRINKLING
     Dosage: 20 UNITS, SINGLE
     Route: 030
     Dates: start: 20120111, end: 20120111
  2. BOTOX COSMETIC [Suspect]
     Dosage: 20 UNK, SINGLE
     Route: 030
     Dates: start: 2009, end: 2009
  3. THYROID MEDICATIONS [Concomitant]
     Indication: HYPERTHYROIDISM
  4. BLOOD PRESSURE PILL [Concomitant]
     Indication: FLUID RETENTION
  5. VALIUM                             /00017001/ [Concomitant]
     Indication: PRODUCT USED FOR UNKNOWN INDICATION
     Dosage: UNK
  6. REQUIP [Concomitant]
     Indication: RESTLESS LEGS SYNDROME

REACTIONS (1)
  - Drug ineffective [Unknown]
